FAERS Safety Report 11688202 (Version 3)
Quarter: 2016Q1

REPORT INFORMATION
  Report Type: Spontaneous
  Country: MX (occurrence: MX)
  Receive Date: 20151030
  Receipt Date: 20160114
  Transmission Date: 20160525
  Serious: Yes (Other)
  Sender: FDA-Public Use
  Company Number: MX-ABBVIE-15P-107-1491715-00

PATIENT
  Age: 72 Year
  Sex: Female
  Weight: 53.7 kg

DRUGS (6)
  1. ARLUY [Concomitant]
     Indication: PRODUCT USED FOR UNKNOWN INDICATION
     Dosage: BEFORE BREAKFAST AND DINNER
     Route: 065
  2. INDERALICI [Concomitant]
     Indication: VARICES OESOPHAGEAL
     Route: 048
  3. VIRAZIDE [Concomitant]
     Indication: CHRONIC HEPATITIS C
     Route: 048
     Dates: start: 20150902, end: 20151125
  4. QUESTRAN [Concomitant]
     Active Substance: CHOLESTYRAMINE
     Indication: IRRITABLE BOWEL SYNDROME
     Dosage: 1 PACK 30 MIN BEFORE BREAKFAST/DINNER
     Route: 048
  5. VIEKIRA PAK [Suspect]
     Active Substance: DASABUVIR\OMBITASVIR\PARITAPREVIR\RITONAVIR
     Indication: CHRONIC HEPATITIS C
     Route: 048
     Dates: start: 20150902, end: 20151125
  6. HYDROXYZINE [Concomitant]
     Active Substance: HYDROXYZINE\HYDROXYZINE HYDROCHLORIDE
     Indication: PRODUCT USED FOR UNKNOWN INDICATION
     Dosage: 25 MG/HALF TABLET AT NIGHT
     Route: 065

REACTIONS (16)
  - Diarrhoea [Unknown]
  - Abdominal pain upper [Unknown]
  - Headache [Unknown]
  - Crying [Unknown]
  - Nausea [Recovered/Resolved]
  - Coagulation time prolonged [Recovered/Resolved]
  - Pruritus [Recovering/Resolving]
  - Depression [Unknown]
  - Affect lability [Unknown]
  - Blood bilirubin increased [Recovered/Resolved]
  - Constipation [Unknown]
  - Abdominal distension [Unknown]
  - Decreased appetite [Recovering/Resolving]
  - Fatigue [Unknown]
  - Decreased appetite [Recovering/Resolving]
  - Feeling hot [Unknown]

NARRATIVE: CASE EVENT DATE: 20150914
